FAERS Safety Report 22611527 (Version 1)
Quarter: 2023Q2

REPORT INFORMATION
  Report Type: Spontaneous
  Country: FR (occurrence: FR)
  Receive Date: 20230616
  Receipt Date: 20230616
  Transmission Date: 20230722
  Serious: Yes (Death)
  Sender: FDA-Public Use
  Company Number: None

PATIENT
  Age: 78 Year
  Sex: Female

DRUGS (6)
  1. PROPOFOL [Suspect]
     Active Substance: PROPOFOL
     Indication: Spinal laminectomy
     Route: 042
     Dates: start: 20230405
  2. XYLOCAINE [Suspect]
     Active Substance: LIDOCAINE HYDROCHLORIDE
     Indication: Spinal laminectomy
     Route: 042
     Dates: start: 20230405
  3. DROPERIDOL [Suspect]
     Active Substance: DROPERIDOL
     Indication: Spinal laminectomy
     Dosage: 25 MG/2,5 ML
     Route: 042
     Dates: start: 20230405
  4. TRACRIUM [Suspect]
     Active Substance: ATRACURIUM BESYLATE
     Indication: Spinal laminectomy
     Dosage: 25 MG/2.5 ML (1 %)
     Dates: start: 20230405
  5. DEXAMETHASONE [Suspect]
     Active Substance: DEXAMETHASONE
     Indication: Spinal laminectomy
     Route: 042
     Dates: start: 20230405
  6. SUFENTA [Suspect]
     Active Substance: SUFENTANIL CITRATE
     Indication: Spinal laminectomy
     Route: 042
     Dates: start: 20230405

REACTIONS (2)
  - Cardio-respiratory arrest [Fatal]
  - Anaphylactic shock [Fatal]

NARRATIVE: CASE EVENT DATE: 20230405
